FAERS Safety Report 7118615-9 (Version None)
Quarter: 2010Q4

REPORT INFORMATION
  Report Type: 
  Country: None (occurrence: None)
  Receive Date: 20101123
  Receipt Date: 20101110
  Transmission Date: 20110411
  Serious: Yes (Other)
  Sender: FDA-Public Use
  Company Number: US-ELI_LILLY_AND_COMPANY-US201011003311

PATIENT
  Age: 30 Year
  Sex: Female

DRUGS (3)
  1. CYMBALTA [Suspect]
     Dosage: 60 MG, UNK
  2. ANTIPSYCHOTICS [Concomitant]
  3. TEGRETOL [Concomitant]

REACTIONS (1)
  - HEPATITIS [None]
